FAERS Safety Report 10093507 (Version 1)
Quarter: 2014Q2

REPORT INFORMATION
  Report Type: Spontaneous
  Country: US (occurrence: US)
  Receive Date: 20140421
  Receipt Date: 20140421
  Transmission Date: 20141212
  Serious: No
  Sender: FDA-Public Use
  Company Number: US-SA-2014SA005590

PATIENT
  Sex: 0

DRUGS (2)
  1. ALLEGRA 24 HOUR [Suspect]
     Route: 048
     Dates: start: 20140112, end: 20140112
  2. ALLEGRA ALLERGY, 12 HR [Suspect]
     Route: 048

REACTIONS (1)
  - Wrong drug administered [Unknown]
